FAERS Safety Report 9061885 (Version 1)
Quarter: 2013Q1

REPORT INFORMATION
  Report Type: Report from Study
  Country: US (occurrence: US)
  Receive Date: 20130129
  Receipt Date: 20130129
  Transmission Date: 20140127
  Serious: No
  Sender: FDA-Public Use
  Company Number: US-ABBOTT-12P-163-0939486-00

PATIENT
  Sex: Female

DRUGS (8)
  1. HUMIRA 40 MG/0.8 ML PEN [Suspect]
     Indication: PSORIASIS
     Dates: start: 20120227
  2. CYMBALTA [Concomitant]
     Indication: DEPRESSION
     Dosage: 60MG ONE TABLET DAILY
  3. KLONOPIN [Concomitant]
     Indication: PRODUCT USED FOR UNKNOWN INDICATION
     Dosage: 1MG ONE TABLET TWICE DAILY
  4. CELEBREX [Concomitant]
     Indication: PRODUCT USED FOR UNKNOWN INDICATION
     Dosage: 200MG ONE TABLET DAILY
  5. TRAMADOL [Concomitant]
     Indication: PAIN
     Dosage: 50MG ONE TO TWO TABLETS TWICE DAILY
  6. TIZANIDINE [Concomitant]
     Dosage: 4MG ONE TO TWO TABLETS AT BEDTIME
  7. LORTAB [Concomitant]
     Indication: PAIN
     Dosage: 7.5 MG ONE TABLET TREE TIMES DAILY
  8. VITAMIN D [Concomitant]
     Indication: PRODUCT USED FOR UNKNOWN INDICATION
     Dosage: 50,000 MG: 1 TABLET WEEKLY

REACTIONS (5)
  - Wrong technique in drug usage process [Unknown]
  - Drug dose omission [Unknown]
  - Wrong technique in drug usage process [Unknown]
  - Drug dose omission [Unknown]
  - Psoriasis [Not Recovered/Not Resolved]
